FAERS Safety Report 6987248-7 (Version None)
Quarter: 2010Q3

REPORT INFORMATION
  Report Type: 
  Country: None (occurrence: None)
  Receive Date: 20100827
  Receipt Date: 20100223
  Transmission Date: 20110219
  Serious: Yes (Hospitalization)
  Sender: FDA-Public Use
  Company Number: AMAG201000131

PATIENT
  Age: 77 Year
  Sex: Female
  Weight: 86.5 kg

DRUGS (5)
  1. FERAHEME [Suspect]
     Indication: IRON DEFICIENCY ANAEMIA
     Dosage: 510 MG, SINGLE, INTRAVENOUS
     Route: 042
     Dates: start: 20100219, end: 20100219
  2. COUMADIN [Concomitant]
  3. ALLOPURINOL [Concomitant]
  4. REQUIP [Concomitant]
  5. CARVEDILOL [Concomitant]

REACTIONS (3)
  - ABDOMINAL PAIN UPPER [None]
  - DIARRHOEA [None]
  - HYPERSENSITIVITY [None]
